FAERS Safety Report 8156708-8 (Version None)
Quarter: 2012Q1

REPORT INFORMATION
  Report Type: 
  Country: None (occurrence: None)
  Receive Date: 20120222
  Receipt Date: 20120216
  Transmission Date: 20120608
  Serious: Yes (Other)
  Sender: FDA-Public Use
  Company Number: US-AMGEN-USASP2012011027

PATIENT
  Age: 73 Year
  Sex: Male

DRUGS (6)
  1. ANTINEOPLASTIC AGENTS [Suspect]
     Indication: MULTIPLE MYELOMA
     Dosage: UNK
     Dates: start: 20111101
  2. EPOGEN [Suspect]
     Dosage: 12000 IU, 3 TIMES/WK
     Dates: start: 20110801
  3. EPOGEN [Suspect]
     Dosage: 26000 IU, 3 TIMES/WK
     Dates: start: 20110901
  4. EPOGEN [Suspect]
     Indication: NEPHROGENIC ANAEMIA
     Dosage: 28000 IU, 3 TIMES/WK
     Dates: start: 20101201
  5. EPOGEN [Suspect]
     Dosage: 12000 IU, 3 TIMES/WK
     Dates: start: 20110401, end: 20110701
  6. EPOGEN [Suspect]
     Dosage: 28000 IU, 3 TIMES/WK
     Dates: start: 20111001

REACTIONS (1)
  - THERAPEUTIC RESPONSE DECREASED [None]
